FAERS Safety Report 5867084-5 (Version None)
Quarter: 2008Q3

REPORT INFORMATION
  Report Type: 
  Country: None (occurrence: None)
  Receive Date: 20080902
  Receipt Date: 20080829
  Transmission Date: 20090109
  Serious: Yes (Life-Threatening)
  Sender: FDA-Public Use
  Company Number: B0534945A

PATIENT
  Age: 55 Year
  Sex: Female

DRUGS (5)
  1. AMOXICILLIN [Suspect]
     Indication: PROPHYLAXIS
     Route: 048
     Dates: start: 20070906, end: 20070906
  2. DIFFU K [Suspect]
     Indication: DRUG USE FOR UNKNOWN INDICATION
     Route: 048
  3. ASPIRIN [Suspect]
     Indication: DRUG USE FOR UNKNOWN INDICATION
     Route: 048
  4. TAHOR [Suspect]
     Indication: DRUG USE FOR UNKNOWN INDICATION
     Route: 048
  5. LASILIX FAIBLE [Suspect]
     Indication: DRUG USE FOR UNKNOWN INDICATION
     Route: 048

REACTIONS (6)
  - ANAPHYLACTIC SHOCK [None]
  - DYSPHONIA [None]
  - DYSPNOEA [None]
  - GENERALISED ERYTHEMA [None]
  - HYPOTENSION [None]
  - MALAISE [None]
